FAERS Safety Report 11533146 (Version 1)
Quarter: 2015Q3

REPORT INFORMATION
  Report Type: Spontaneous
  Country: AU (occurrence: AU)
  Receive Date: 20150921
  Receipt Date: 20150921
  Transmission Date: 20151125
  Serious: Yes (Other)
  Sender: FDA-Public Use
  Company Number: AU-ASTRAZENECA-2015SE88515

PATIENT
  Age: 23298 Day
  Sex: Male
  Weight: 87.8 kg

DRUGS (27)
  1. LYRICA [Suspect]
     Active Substance: PREGABALIN
     Indication: NEURALGIA
     Route: 048
     Dates: start: 20141128, end: 20150805
  2. FISH OIL [Concomitant]
     Active Substance: FISH OIL
  3. VITAMIN E [Concomitant]
     Active Substance: .ALPHA.-TOCOPHEROL
  4. MSM [Concomitant]
     Active Substance: DIMETHYL SULFONE
  5. VENTOLIN [Concomitant]
     Active Substance: ALBUTEROL SULFATE
     Dosage: MDI
  6. PANADOL [Concomitant]
     Active Substance: ACETAMINOPHEN
  7. FOLIC ACID. [Concomitant]
     Active Substance: FOLIC ACID
  8. GLIMEPIRIDE. [Concomitant]
     Active Substance: GLIMEPIRIDE
  9. ZYDOL [Concomitant]
     Active Substance: TRAMADOL HYDROCHLORIDE
     Dosage: NOCTE
  10. VALPAM [Concomitant]
     Dosage: NOCTE
  11. PROBIOTICS [Concomitant]
     Active Substance: PROBIOTICS NOS
  12. FORXIGA [Concomitant]
     Active Substance: DAPAGLIFLOZIN
     Dosage: EVENING
  13. NEXIUM [Concomitant]
     Active Substance: ESOMEPRAZOLE MAGNESIUM
  14. VITAMIN D [Concomitant]
     Active Substance: CHOLECALCIFEROL
  15. ST JOHN WORT [Concomitant]
  16. ATROVENT [Concomitant]
     Active Substance: IPRATROPIUM BROMIDE
     Dosage: MDI
  17. FML [Concomitant]
     Active Substance: FLUOROMETHOLONE
     Dosage: AS REQUIRED
     Route: 047
  18. VITAMIN B COMPLEX [Concomitant]
     Active Substance: CYANOCOBALAMIN\DEXPANTHENOL\NIACINAMIDE\PYRIDOXINE HYDROCHLORIDE\RIBOFLAVIN 5^-PHOSPHATE SODIUM\THIAMINE HYDROCHLORIDE\VITAMIN B COMPLEX
  19. VENTOLIN [Concomitant]
     Active Substance: ALBUTEROL SULFATE
     Dosage: 3-4 DAYS
  20. SERETIDE [Concomitant]
     Active Substance: FLUTICASONE FUROATE\SALMETEROL XINAFOATE
     Indication: BLOOD PRESSURE MEASUREMENT
     Dosage: 250/25
  21. ALPHA-KERI [Concomitant]
     Dosage: OIL AND CREAM
  22. VITAMIN C [Concomitant]
     Active Substance: ASCORBIC ACID
  23. ZINC [Concomitant]
     Active Substance: ZINC\ZINC CHLORIDE
     Dosage: AS REQUIRED
  24. LOSEC [Suspect]
     Active Substance: OMEPRAZOLE
     Route: 048
  25. NASONEX [Concomitant]
     Active Substance: MOMETASONE FUROATE
     Dosage: AQUEOUS N/S FLO SINUS
  26. BRICANYL [Concomitant]
     Active Substance: TERBUTALINE SULFATE
     Dosage: AS REQUIRED
  27. COD-LIVER OIL [Concomitant]
     Active Substance: FISH OIL

REACTIONS (8)
  - Blood pressure increased [Recovered/Resolved]
  - Pain [Unknown]
  - Muscle spasms [Unknown]
  - Hypersensitivity [Recovered/Resolved]
  - Chest discomfort [Recovered/Resolved]
  - Dyspnoea [Recovered/Resolved]
  - Nausea [Unknown]
  - Diarrhoea [Recovered/Resolved]

NARRATIVE: CASE EVENT DATE: 20150805
